FAERS Safety Report 5135295-2 (Version None)
Quarter: 2006Q4

REPORT INFORMATION
  Report Type: 
  Country: None (occurrence: None)
  Receive Date: 20061026
  Receipt Date: 20050411
  Transmission Date: 20070319
  Serious: Yes (Hospitalization, Disabling)
  Sender: FDA-Public Use
  Company Number: PHHO2005GB05833

PATIENT
  Age: 58 Year
  Sex: Female
  Weight: 78.3 kg

DRUGS (16)
  1. ZOLEDRONIC ACID [Suspect]
     Indication: METASTASES TO BONE
     Dosage: 4 MG, UNK
     Route: 042
     Dates: start: 20040402, end: 20050412
  2. EPIRUBICIN [Concomitant]
     Indication: BREAST CANCER
     Dosage: 180 MG, UNK
     Route: 042
     Dates: start: 20040402, end: 20040402
  3. DEXAMETHASONE TAB [Concomitant]
     Indication: ANTIEMETIC SUPPORTIVE CARE
     Dosage: 8 MG, UNK
     Route: 042
     Dates: start: 20040402, end: 20040402
  4. DEXAMETHASONE TAB [Concomitant]
     Dosage: 2 MG, TID
     Route: 048
     Dates: start: 20040402, end: 20040404
  5. DEXAMETHASONE TAB [Concomitant]
     Dosage: 10 MG, UNK
     Route: 042
     Dates: start: 20040922, end: 20040922
  6. DEXAMETHASONE TAB [Concomitant]
     Dosage: 2 MG, TID
     Route: 048
     Dates: start: 20040922, end: 20040924
  7. GRANISETRON [Concomitant]
     Indication: ANTIEMETIC SUPPORTIVE CARE
     Dosage: 3 MG, UNK
     Route: 042
     Dates: start: 20040402, end: 20040402
  8. GRANISETRON [Concomitant]
     Dosage: 1 MG, UNK
     Route: 048
     Dates: start: 20040402, end: 20040403
  9. DOMPERIDONE [Concomitant]
     Indication: ANTIEMETIC SUPPORTIVE CARE
     Dosage: 10-20 MG, QD PRN
     Route: 048
     Dates: start: 20040402, end: 20040409
  10. DOMPERIDONE [Concomitant]
     Dosage: 10-20 MG, QD PRN
     Route: 048
     Dates: start: 20040923, end: 20041006
  11. FOLINIC ACID [Concomitant]
     Dosage: 15 MG, UNK
     Route: 048
     Dates: start: 20040923, end: 20040924
  12. CYCLOPHOSPHAMIDE [Concomitant]
     Indication: BREAST CANCER
     Dates: start: 20040923, end: 20041004
  13. FLUOROURACIL [Concomitant]
     Indication: BREAST CANCER
     Dosage: 1100 MG, UNK
     Route: 042
     Dates: start: 20040922, end: 20040922
  14. METHOTREXATE SODIUM [Concomitant]
     Dosage: 75 MG, UNK
     Route: 042
     Dates: start: 20040922, end: 20040922
  15. ONDASETRON [Concomitant]
     Indication: ANTIEMETIC SUPPORTIVE CARE
     Dosage: 8 MG, UNK
     Route: 042
     Dates: start: 20040922, end: 20040922
  16. ARIMIDEX [Concomitant]
     Indication: BREAST CANCER
     Route: 048
     Dates: start: 20040927

REACTIONS (9)
  - ARTHRALGIA [None]
  - BONE DISORDER [None]
  - BURSA DISORDER [None]
  - GAIT DISTURBANCE [None]
  - HAEMANGIOMA [None]
  - HIP ARTHROPLASTY [None]
  - JOINT STIFFNESS [None]
  - MUSCLE DISORDER [None]
  - OSTEONECROSIS [None]
